FAERS Safety Report 7250820-3 (Version None)
Quarter: 2011Q1

REPORT INFORMATION
  Report Type: 
  Country: None (occurrence: None)
  Receive Date: 20110128
  Receipt Date: 20110119
  Transmission Date: 20110831
  Serious: Yes (Hospitalization)
  Sender: FDA-Public Use
  Company Number: FR-BRISTOL-MYERS SQUIBB COMPANY-15408560

PATIENT
  Age: 72 Year
  Sex: Female

DRUGS (12)
  1. LOPERAMIDE [Concomitant]
  2. NOVONORM [Concomitant]
  3. ATHYMIL [Concomitant]
  4. KENZEN [Concomitant]
  5. LEVOTHYROX [Concomitant]
  6. MODOPAR [Concomitant]
  7. CRESTOR [Concomitant]
  8. KIVEXA [Concomitant]
  9. DIAMICRON [Concomitant]
  10. TRIVASTAL [Concomitant]
  11. REYATAZ [Suspect]
     Indication: HIV INFECTION
  12. NORVIR [Concomitant]

REACTIONS (4)
  - BONE FISSURE [None]
  - OSTEOPOROSIS [None]
  - PYELONEPHRITIS [None]
  - CALCULUS URINARY [None]
